FAERS Safety Report 9503525 (Version 1)
Quarter: 2013Q1

REPORT INFORMATION
  Report Type: Spontaneous
  Country: US (occurrence: None)
  Receive Date: 20130225
  Receipt Date: 20130225
  Transmission Date: 20140127
  Serious: No
  Sender: FDA-Public Use
  Company Number: 366155

PATIENT
  Age: 45 Year
  Sex: Female

DRUGS (4)
  1. VICTOZA (LIRAGLUTIDE) SOLUTION FOR INJECTION, 6MG/ML [Suspect]
     Indication: TYPE 2 DIABETES MELLITUS
     Route: 058
  2. AMARYL (FLIMEPIRIDE) [Concomitant]
  3. BYETTA (EXENATIDE, EXENATIDE) [Concomitant]
  4. BYDUREON (EXENATIDE) [Concomitant]

REACTIONS (1)
  - Rash [None]
